FAERS Safety Report 6480936-0 (Version None)
Quarter: 2009Q4

REPORT INFORMATION
  Report Type: 
  Country: None (occurrence: None)
  Receive Date: 20091208
  Receipt Date: 20091130
  Transmission Date: 20100525
  Serious: Yes (Other)
  Sender: FDA-Public Use
  Company Number: PHHY2009DE53045

PATIENT
  Age: 69 Year
  Sex: Female

DRUGS (3)
  1. PROVAS [Suspect]
     Route: 048
  2. BELOC ZOK [Concomitant]
  3. TORSEMIDE [Concomitant]

REACTIONS (2)
  - CARDIOSPASM [None]
  - MYALGIA [None]
